FAERS Safety Report 24023195 (Version 5)
Quarter: 2024Q3

REPORT INFORMATION
  Report Type: Spontaneous
  Country: ES (occurrence: ES)
  Receive Date: 20240627
  Receipt Date: 20240709
  Transmission Date: 20241016
  Serious: Yes (Other)
  Sender: ROCHE
  Company Number: ES-ROCHE-3566151

PATIENT
  Age: 68 Year
  Sex: Male

DRUGS (1)
  1. VABYSMO [Suspect]
     Active Substance: FARICIMAB\FARICIMAB-SVOA
     Indication: Polypoidal choroidal vasculopathy
     Route: 065

REACTIONS (4)
  - Vitritis [Unknown]
  - Iridocyclitis [Unknown]
  - Off label use [Unknown]
  - Off label use [Unknown]
